FAERS Safety Report 8866141 (Version 1)
Quarter: 2012Q4

REPORT INFORMATION
  Report Type: 
  Country: US (occurrence: US)
  Receive Date: 20121025
  Receipt Date: 20121025
  Transmission Date: 20130627
  Serious: Yes (Other)
  Sender: FDA-Public Use
  Company Number: US-ASTRAZENECA-2012SE79532

PATIENT
  Age: 88 Year
  Sex: Male

DRUGS (3)
  1. BRILINTA [Suspect]
     Indication: ANGINA UNSTABLE
     Route: 048
  2. ANTIHYPERTENSIVE MED [Concomitant]
     Indication: HYPERTENSION
  3. BETA BLOCKER [Concomitant]

REACTIONS (5)
  - Road traffic accident [Unknown]
  - Bradycardia [Unknown]
  - Syncope [Unknown]
  - Dyspnoea [Unknown]
  - Somnolence [Unknown]
